FAERS Safety Report 4511605-1 (Version None)
Quarter: 2004Q4

REPORT INFORMATION
  Report Type: 
  Country: None (occurrence: None)
  Receive Date: 20041129
  Receipt Date: 20041014
  Transmission Date: 20050328
  Serious: No
  Sender: FDA-Public Use
  Company Number: US-BRISTOL-MYERS SQUIBB COMPANY-12731659

PATIENT
  Age: 60 Year
  Sex: Female
  Weight: 75 kg

DRUGS (7)
  1. ABILIFY [Suspect]
     Indication: BIPOLAR DISORDER
     Route: 048
     Dates: start: 20040802
  2. LAMICTAL [Concomitant]
  3. RISPERDAL [Concomitant]
  4. SEROQUEL [Concomitant]
  5. TOPROL-XL [Concomitant]
  6. EVISTA [Concomitant]
  7. GLUCOPHAGE XR [Concomitant]

REACTIONS (3)
  - NAUSEA [None]
  - URINARY TRACT INFECTION [None]
  - VOMITING [None]
